FAERS Safety Report 20560834 (Version 1)
Quarter: 2022Q1

REPORT INFORMATION
  Report Type: Report from Study
  Country: ES (occurrence: ES)
  Receive Date: 20220307
  Receipt Date: 20220307
  Transmission Date: 20220423
  Serious: Yes (Other)
  Sender: FDA-Public Use
  Company Number: ES-GLAXOSMITHKLINE-ES2022GSK041079

PATIENT

DRUGS (1)
  1. BELANTAMAB MAFODOTIN [Suspect]
     Active Substance: BELANTAMAB MAFODOTIN
     Indication: Plasma cell myeloma
     Dosage: 100MG/VIAL/ 2.5MG/KG EVERY 3WEEKS
     Route: 042

REACTIONS (2)
  - Hypersensitivity pneumonitis [Recovered/Resolved]
  - Sleep apnoea syndrome [Recovered/Resolved]
